FAERS Safety Report 7760075-9 (Version None)
Quarter: 2011Q3

REPORT INFORMATION
  Report Type: 
  Country: None (occurrence: None)
  Receive Date: 20110919
  Receipt Date: 20110906
  Transmission Date: 20111222
  Serious: Yes (Hospitalization)
  Sender: FDA-Public Use
  Company Number: JP-JNJFOC-20110606713

PATIENT
  Sex: Male
  Weight: 68 kg

DRUGS (15)
  1. TRAMADOL HCL [Suspect]
     Indication: PAIN
     Route: 048
     Dates: start: 20110506, end: 20110511
  2. LIPITOR [Concomitant]
     Indication: DYSLIPIDAEMIA
     Route: 048
  3. TRAMADOL HCL [Suspect]
     Route: 048
     Dates: start: 20110421, end: 20110505
  4. ALINAMIN F [Concomitant]
     Indication: VITAMIN SUPPLEMENTATION
     Route: 048
     Dates: end: 20110606
  5. LYRICA [Concomitant]
     Indication: PAIN
     Route: 048
     Dates: start: 20110331, end: 20110606
  6. ALPRAZOLAM [Concomitant]
     Indication: INSOMNIA
     Route: 048
     Dates: end: 20110606
  7. TRAMADOL HCL [Suspect]
     Route: 048
     Dates: start: 20110526, end: 20110606
  8. TRAMADOL HCL [Suspect]
     Route: 048
     Dates: start: 20110512, end: 20110525
  9. PRORENAL [Concomitant]
     Indication: PAIN
     Route: 048
     Dates: end: 20110606
  10. SELBEX [Concomitant]
     Indication: GASTRITIS
     Route: 048
  11. VOLTAREN [Concomitant]
     Indication: PAIN
     Route: 048
     Dates: end: 20110606
  12. ASPIRIN [Concomitant]
     Indication: THROMBOSIS PROPHYLAXIS
     Route: 048
  13. GASMOTIN [Concomitant]
     Indication: GASTRITIS
     Route: 048
     Dates: end: 20110606
  14. ZOLPIDEM [Concomitant]
     Indication: INSOMNIA
     Route: 048
     Dates: end: 20110605
  15. MAGNESIUM SULFATE [Concomitant]
     Indication: CONSTIPATION
     Route: 048
     Dates: start: 20110512, end: 20110606

REACTIONS (1)
  - PNEUMONIA [None]
